FAERS Safety Report 25404000 (Version 1)
Quarter: 2025Q2

REPORT INFORMATION
  Report Type: Report from Study
  Country: GB (occurrence: GB)
  Receive Date: 20250606
  Receipt Date: 20250606
  Transmission Date: 20250716
  Serious: Yes (Other)
  Sender: UCB
  Company Number: GB-UCBSA-2025033420

PATIENT
  Sex: Female

DRUGS (1)
  1. CERTOLIZUMAB PEGOL [Suspect]
     Active Substance: CERTOLIZUMAB PEGOL
     Indication: Rheumatoid arthritis
     Dosage: INJECT ONE PRE-FILLED PEN
     Route: 058
     Dates: start: 202412, end: 202505

REACTIONS (3)
  - Lacrimal duct procedure [Unknown]
  - Dyspnoea [Unknown]
  - Malaise [Unknown]
